FAERS Safety Report 8577473 (Version 2)
Quarter: 2012Q4

REPORT INFORMATION
  Report Type: 
  Country: US (occurrence: US)
  Receive Date: 20120524
  Receipt Date: 20121019
  Transmission Date: 20130627
  Serious: Yes (Other)
  Sender: FDA-Public Use
  Company Number: US-US-EMD SERONO, INC.-7134041

PATIENT
  Sex: Female

DRUGS (2)
  1. REBIF [Suspect]
     Indication: MULTIPLE SCLEROSIS
     Route: 058
     Dates: start: 20100712
  2. UNSPECIFIED MEDICATION [Concomitant]
     Indication: COLITIS

REACTIONS (2)
  - Meningioma [Not Recovered/Not Resolved]
  - Influenza like illness [Not Recovered/Not Resolved]
